FAERS Safety Report 18836721 (Version 1)
Quarter: 2021Q1

REPORT INFORMATION
  Report Type: Spontaneous
  Country: US (occurrence: US)
  Receive Date: 20210203
  Receipt Date: 20210203
  Transmission Date: 20210419
  Serious: No
  Sender: FDA-Public Use
  Company Number: US-ALLERGAN-2011913US

PATIENT
  Sex: Female

DRUGS (1)
  1. BOTOX COSMETIC [Suspect]
     Active Substance: ONABOTULINUMTOXINA
     Indication: SKIN WRINKLING
     Dosage: UNK, SINGLE
     Dates: start: 201602, end: 202002

REACTIONS (5)
  - Gait disturbance [Unknown]
  - Dry eye [Unknown]
  - Illness [Unknown]
  - Nerve injury [Unknown]
  - Hypoaesthesia [Unknown]
